FAERS Safety Report 5207152-4 (Version None)
Quarter: 2007Q1

REPORT INFORMATION
  Report Type: 
  Country: None (occurrence: None)
  Receive Date: 20070112
  Receipt Date: 20070109
  Transmission Date: 20070707
  Serious: Yes (Hospitalization)
  Sender: FDA-Public Use
  Company Number: FR-ROCHE-477416

PATIENT
  Age: 60 Year
  Sex: Female

DRUGS (2)
  1. DACLIZUMAB [Suspect]
     Route: 042
     Dates: start: 20061014
  2. FK506 [Suspect]
     Route: 065
     Dates: start: 20061014

REACTIONS (2)
  - DIALYSIS [None]
  - RENAL FAILURE [None]
